FAERS Safety Report 9353265 (Version 2)
Quarter: 2013Q3

REPORT INFORMATION
  Report Type: Spontaneous
  Country: US (occurrence: US)
  Receive Date: 20130618
  Receipt Date: 20130712
  Transmission Date: 20140515
  Serious: No
  Sender: FDA-Public Use
  Company Number: US-PFIZER INC-2013178413

PATIENT
  Age: 40 Year
  Sex: Female

DRUGS (2)
  1. XELJANZ [Suspect]
     Indication: RHEUMATOID ARTHRITIS
     Dosage: 5 BID
     Dates: start: 201305, end: 2013
  2. CIPRO [Concomitant]

REACTIONS (2)
  - Musculoskeletal pain [Recovered/Resolved]
  - Tendon pain [Recovered/Resolved]
